FAERS Safety Report 21295618 (Version 2)
Quarter: 2022Q4

REPORT INFORMATION
  Report Type: Spontaneous
  Country: US (occurrence: US)
  Receive Date: 20220906
  Receipt Date: 20221025
  Transmission Date: 20230113
  Serious: Yes (Other)
  Sender: FDA-Public Use
  Company Number: US-LDSO-CANADA-163-21880-12061024

PATIENT
  Sex: Female

DRUGS (15)
  1. REVLIMID [Suspect]
     Active Substance: LENALIDOMIDE
     Indication: Product used for unknown indication
     Dosage: DRUG TAKEN BY MALE PATIENT ORALLY
     Route: 050
     Dates: start: 20070130
  2. REVLIMID [Suspect]
     Active Substance: LENALIDOMIDE
     Dosage: DRUG TAKEN BY MALE PATIENT ORALLY
     Route: 050
     Dates: start: 200909
  3. CELEBREX [Concomitant]
     Active Substance: CELECOXIB
     Indication: Product used for unknown indication
     Dosage: DRUG TAKEN BY MALE PATIENT
     Route: 050
  4. FENTANYL [Concomitant]
     Active Substance: FENTANYL
     Indication: Product used for unknown indication
     Route: 050
  5. FLOMAX [Concomitant]
     Active Substance: TAMSULOSIN HYDROCHLORIDE
     Indication: Product used for unknown indication
     Dosage: DRUG TAKEN BY MALE PATIENT
     Route: 050
  6. HUMALOG [Concomitant]
     Active Substance: INSULIN LISPRO
     Indication: Product used for unknown indication
     Dosage: DRUG TAKEN BY MALE PATIENT
     Route: 050
  7. LAMISIL [Concomitant]
     Active Substance: TERBINAFINE HYDROCHLORIDE
     Indication: Product used for unknown indication
     Dosage: DRUG TAKEN BY MALE PATIENT TOPICALLY
     Route: 050
  8. LANTUS [Concomitant]
     Active Substance: INSULIN GLARGINE
     Indication: Product used for unknown indication
     Dosage: DRUG TAKEN BY MALE PATIENT
     Route: 050
  9. LORTAB [Concomitant]
     Active Substance: ACETAMINOPHEN\HYDROCODONE BITARTRATE
     Indication: Product used for unknown indication
     Dosage: DRUG TAKEN BY MALE PATIENT
     Route: 050
  10. VITAMINS [Concomitant]
     Active Substance: VITAMINS
     Indication: Product used for unknown indication
     Dosage: DRUG TAKEN BY MALE PATIENT
     Route: 050
  11. NEURONTIN [Concomitant]
     Active Substance: GABAPENTIN
     Indication: Product used for unknown indication
     Dosage: DRUG TAKEN BY MALE PATIENT
     Route: 050
  12. NORCO [Concomitant]
     Active Substance: ACETAMINOPHEN\HYDROCODONE BITARTRATE
     Indication: Product used for unknown indication
     Dosage: DRUG TAKEN BY MALE PATIENT
     Route: 050
  13. VITAMINS [Concomitant]
     Active Substance: VITAMINS
     Indication: Product used for unknown indication
     Dosage: DRUG TAKEN BY MALE PATIENT
     Route: 050
  14. SOMA [Concomitant]
     Active Substance: CARISOPRODOL
     Indication: Product used for unknown indication
     Dosage: DRUG TAKEN BY MALE PATIENT
     Route: 050
  15. TESTOSTERONE [Concomitant]
     Active Substance: TESTOSTERONE
     Indication: Product used for unknown indication
     Dosage: DRUG TAKEN BY MALE PATIENT
     Route: 050

REACTIONS (3)
  - Exposure via body fluid [Unknown]
  - Pregnancy with contraceptive device [Unknown]
  - Live birth [Unknown]
